FAERS Safety Report 20665394 (Version 2)
Quarter: 2022Q2

REPORT INFORMATION
  Report Type: Report from Study
  Country: US (occurrence: US)
  Receive Date: 20220402
  Receipt Date: 20220407
  Transmission Date: 20220720
  Serious: No
  Sender: FDA-Public Use
  Company Number: US-NOVARTISTESTPH-NVSC2022US073791

PATIENT
  Age: 29 Year
  Sex: Male

DRUGS (2)
  1. PREDNISOLONE [Suspect]
     Active Substance: PREDNISOLONE
     Indication: Immune thrombocytopenia
     Dosage: UNK
     Route: 065
  2. DAPSONE [Concomitant]
     Active Substance: DAPSONE
     Indication: Product used for unknown indication
     Dosage: UNK
     Route: 065

REACTIONS (16)
  - Fatigue [Unknown]
  - Emotional disorder [Unknown]
  - Cognitive disorder [Unknown]
  - Loss of personal independence in daily activities [Unknown]
  - Asthenia [Unknown]
  - Affective disorder [Unknown]
  - Stress [Unknown]
  - Depressed mood [Unknown]
  - Decreased interest [Unknown]
  - Decreased appetite [Unknown]
  - Feeling abnormal [Unknown]
  - Disturbance in attention [Unknown]
  - Hyperphagia [Unknown]
  - Anxiety [Unknown]
  - Depression [Unknown]
  - Drug ineffective [Unknown]
